FAERS Safety Report 7285093-9 (Version None)
Quarter: 2011Q1

REPORT INFORMATION
  Report Type: 
  Country: None (occurrence: None)
  Receive Date: 20110210
  Receipt Date: 20110131
  Transmission Date: 20110831
  Serious: Yes (Hospitalization)
  Sender: FDA-Public Use
  Company Number: PHHY2009FR56691

PATIENT
  Sex: Female
  Weight: 63.6 kg

DRUGS (6)
  1. LESCOL [Concomitant]
     Indication: HYPERLIPIDAEMIA
     Dosage: 20 MG, UNK
     Dates: start: 20080424
  2. TAREG [Concomitant]
     Indication: HYPERTENSION
     Dosage: 40 MG, UNK
     Dates: start: 20080521
  3. BACTRIM [Concomitant]
  4. MYCOPHENOLIC ACID [Suspect]
     Indication: RENAL TRANSPLANT
     Dosage: 1440 MG, UNK
     Route: 048
     Dates: start: 20071111
  5. CORTANCYL [Suspect]
     Dosage: 10 MG, UNK
     Route: 048
     Dates: start: 20071111
  6. ATENOLOL [Concomitant]
     Indication: HYPERTENSION
     Dosage: 75 MG, UNK
     Dates: start: 20071213

REACTIONS (7)
  - GENERAL PHYSICAL HEALTH DETERIORATION [None]
  - LIPASE INCREASED [None]
  - ULCER [None]
  - HERPES ZOSTER [None]
  - ABDOMINAL PAIN UPPER [None]
  - PANCYTOPENIA [None]
  - OESOPHAGITIS [None]
